FAERS Safety Report 18873116 (Version 1)
Quarter: 2021Q1

REPORT INFORMATION
  Report Type: Other
  Country: CN (occurrence: CN)
  Receive Date: 20210210
  Receipt Date: 20210210
  Transmission Date: 20210420
  Serious: Yes (Other)
  Sender: FDA-Public Use
  Company Number: CN-ROCHE-2763147

PATIENT

DRUGS (4)
  1. PACLITAXEL. [Suspect]
     Active Substance: PACLITAXEL
     Indication: NON-SMALL CELL LUNG CANCER
     Dosage: 135?175MG (/KG/M2),DAY1,3 WEEKS AS CYCLE, CONTINUOUS TREATMENT FOR 2 CYCLES
     Route: 041
  2. CISPLATIN. [Suspect]
     Active Substance: CISPLATIN
     Indication: NON-SMALL CELL LUNG CANCER
     Dosage: 20 MG/KG/M2, ON DAY 2?5 EVERY 3 WEEKS AS CYCLE, CONTINUOUS TREATMENT FOR 2 CYCLES
     Route: 042
  3. SODIUM CHLORIDE. [Concomitant]
     Active Substance: SODIUM CHLORIDE
     Route: 042
  4. BEVACIZUMAB. [Suspect]
     Active Substance: BEVACIZUMAB
     Indication: NON-SMALL CELL LUNG CANCER
     Dosage: 7.5 MG/KG/M2, EVERY 3 WEEKS AS A CYCLE,CONTINUOUS TREATMENT FOR 2 CYCLES
     Route: 042

REACTIONS (1)
  - Renal impairment [Unknown]
